FAERS Safety Report 5225610-3 (Version None)
Quarter: 2007Q1

REPORT INFORMATION
  Report Type: 
  Country: None (occurrence: None)
  Receive Date: 20061201
  Receipt Date: 20060828
  Transmission Date: 20070707
  Serious: Yes (Hospitalization)
  Sender: FDA-Public Use
  Company Number: US200608006265

PATIENT
  Age: 22 Year
  Sex: Male

DRUGS (9)
  1. PROZAC [Suspect]
     Indication: DEPRESSION
     Dates: start: 19990101
  2. CYMBALTA [Suspect]
     Indication: BIPOLAR DISORDER
     Dosage: 60 MG, EACH MORNING
     Dates: start: 20060801
  3. LAMICTAL [Concomitant]
  4. ELAVIL [Concomitant]
  5. XANAX [Concomitant]
  6. VALIUM [Concomitant]
  7. DILAUDID [Concomitant]
  8. BENEFIBER  (GUAR GUM) [Concomitant]
  9. MULTIVITAMINS (ASCORBIC ACID, ERGOCALCIFEROL, FOLIC ACID, NICOTINAMIDE [Concomitant]

REACTIONS (3)
  - FEELING ABNORMAL [None]
  - MANIA [None]
  - RESTLESSNESS [None]
